FAERS Safety Report 16107276 (Version 2)
Quarter: 2019Q2

REPORT INFORMATION
  Report Type: Spontaneous
  Country: GB (occurrence: GB)
  Receive Date: 20190322
  Receipt Date: 20190410
  Transmission Date: 20190711
  Serious: Yes (Other)
  Sender: FDA-Public Use
  Company Number: GB-PFIZER INC-2019118975

PATIENT
  Age: 72 Year
  Sex: Male
  Weight: 95 kg

DRUGS (4)
  1. SODIUM CHLORIDE. [Suspect]
     Active Substance: SODIUM CHLORIDE
     Dosage: DRUG WAS RESTARTED AT 1/4 RATE AND THE PATIENT HAD SO FAR TOLERATED 1/4 RATE AND 1/2 RATE
     Route: 065
  2. DOCETAXEL. [Suspect]
     Active Substance: DOCETAXEL
     Indication: NEOPLASM MALIGNANT
     Dosage: 160 MG, EVERY 3 WEEKS
     Route: 042
     Dates: start: 20190222, end: 20190222
  3. DOCETAXEL. [Suspect]
     Active Substance: DOCETAXEL
     Dosage: (DRUG WAS RESTARTED AT 1/4 RATE AND THE PATIENT HAD SO FAR TOLERATED 1/4 RATE AND 1/2 RATE)
  4. SODIUM CHLORIDE. [Suspect]
     Active Substance: SODIUM CHLORIDE
     Indication: MEDICATION DILUTION
     Dosage: 1 DF, EVERY 3 WEEKS
     Route: 042
     Dates: start: 20190222, end: 20190222

REACTIONS (1)
  - Dyspnoea [Recovered/Resolved]

NARRATIVE: CASE EVENT DATE: 20190222
